FAERS Safety Report 18477202 (Version 3)
Quarter: 2020Q4

REPORT INFORMATION
  Report Type: Spontaneous
  Country: IL (occurrence: IL)
  Receive Date: 20201107
  Receipt Date: 20201217
  Transmission Date: 20210114
  Serious: Yes (Other)
  Sender: FDA-Public Use
  Company Number: IL-TAKEDA-2020TUS044743

PATIENT
  Sex: Female

DRUGS (8)
  1. NATPARA (PARATHYROID HORMONE) [Suspect]
     Active Substance: PARATHYROID HORMONE
     Dosage: 75 MICROGRAM, QD
     Route: 065
  2. NATPARA (PARATHYROID HORMONE) [Suspect]
     Active Substance: PARATHYROID HORMONE
     Indication: HYPOPARATHYROIDISM
     Dosage: UNK
     Route: 065
  3. NATPARA (PARATHYROID HORMONE) [Suspect]
     Active Substance: PARATHYROID HORMONE
     Dosage: 75 MICROGRAM, QD
     Route: 065
  4. NATPARA (PARATHYROID HORMONE) [Suspect]
     Active Substance: PARATHYROID HORMONE
     Indication: HYPOPARATHYROIDISM
     Dosage: UNK
     Route: 065
  5. NATPARA (PARATHYROID HORMONE) [Suspect]
     Active Substance: PARATHYROID HORMONE
     Indication: HYPOPARATHYROIDISM
     Dosage: UNK
     Route: 065
  6. NATPARA (PARATHYROID HORMONE) [Suspect]
     Active Substance: PARATHYROID HORMONE
     Dosage: 75 MICROGRAM, QD
     Route: 065
  7. CALCIUM [Concomitant]
     Active Substance: CALCIUM
     Indication: PRODUCT USED FOR UNKNOWN INDICATION
  8. CARDILOC [Concomitant]
     Active Substance: BISOPROLOL FUMARATE
     Indication: PRODUCT USED FOR UNKNOWN INDICATION

REACTIONS (5)
  - Poor quality product administered [Unknown]
  - Tremor [Recovered/Resolved]
  - Calcium deficiency [Recovered/Resolved]
  - Product storage error [Unknown]
  - Paraesthesia oral [Recovered/Resolved]

NARRATIVE: CASE EVENT DATE: 20201024
